FAERS Safety Report 9103691 (Version 1)
Quarter: 2013Q1

REPORT INFORMATION
  Report Type: Spontaneous
  Country: ES (occurrence: ES)
  Receive Date: 20130219
  Receipt Date: 20130219
  Transmission Date: 20140127
  Serious: Yes (Other)
  Sender: FDA-Public Use
  Company Number: ES-PFIZER INC-2013024926

PATIENT
  Age: 77 Year
  Sex: Male

DRUGS (3)
  1. TAZOCEL [Suspect]
     Indication: POSTOPERATIVE WOUND INFECTION
     Dosage: 1 G, 3X/DAY
     Route: 042
     Dates: start: 20090201, end: 20090222
  2. ACETAMINOPHEN [Concomitant]
     Indication: PAIN
     Dosage: UNK
     Dates: start: 20090125, end: 20090222
  3. METOCLOPRAMIDE [Concomitant]
     Indication: VOMITING
     Dosage: UNK
     Dates: start: 20090201, end: 20090301

REACTIONS (1)
  - Drug reaction with eosinophilia and systemic symptoms [Recovered/Resolved]
